FAERS Safety Report 7078038-8 (Version None)
Quarter: 2010Q4

REPORT INFORMATION
  Report Type: 
  Country: None (occurrence: None)
  Receive Date: 20101102
  Receipt Date: 20101020
  Transmission Date: 20110411
  Serious: Yes (Hospitalization)
  Sender: FDA-Public Use
  Company Number: US-BIOGENIDEC-2010BI037346

PATIENT
  Age: 63 Year
  Sex: Female

DRUGS (25)
  1. TYSABRI [Suspect]
     Indication: MULTIPLE SCLEROSIS
     Route: 042
     Dates: start: 20100823
  2. XANAX [Concomitant]
  3. ELAVIL [Concomitant]
  4. CELEXA [Concomitant]
  5. LASIX [Concomitant]
  6. NEURONTIN [Concomitant]
  7. VOLTAREN [Concomitant]
  8. MICRO-K [Concomitant]
  9. LORTAB [Concomitant]
     Indication: PAIN
  10. LISINOPRIL [Concomitant]
     Indication: HYPERTENSION
  11. INSULIN [Concomitant]
  12. CRESTOR [Concomitant]
  13. LOVAZA [Concomitant]
  14. NORVASC [Concomitant]
  15. LEVEMIR [Concomitant]
  16. STEROIDS (NOS) [Concomitant]
     Indication: MULTIPLE SCLEROSIS
  17. CLONIDINE [Concomitant]
     Indication: HYPERTENSION
  18. ASPIRIN [Concomitant]
  19. PLAVIX [Concomitant]
  20. FAMOTIDINE [Concomitant]
  21. TRANDATE [Concomitant]
  22. LEVOTHYROXINE [Concomitant]
  23. NITROGLYCERIN [Concomitant]
  24. GLUCOTROL [Concomitant]
  25. ZANTAC [Concomitant]

REACTIONS (2)
  - MULTIPLE SCLEROSIS RELAPSE [None]
  - TRANSIENT ISCHAEMIC ATTACK [None]
